FAERS Safety Report 8362654-7 (Version None)
Quarter: 2012Q2

REPORT INFORMATION
  Report Type: 
  Country: None (occurrence: None)
  Receive Date: 20120516
  Receipt Date: 20120514
  Transmission Date: 20120825
  Serious: Yes (Other)
  Sender: FDA-Public Use
  Company Number: US-PFIZER INC-2012117279

PATIENT
  Sex: Female
  Weight: 82 kg

DRUGS (3)
  1. GABAPENTIN [Suspect]
     Indication: NEUROPATHY PERIPHERAL
     Dosage: UNK, 3X/DAY
     Route: 048
     Dates: start: 20080101, end: 20100101
  2. GABAPENTIN [Suspect]
     Indication: FIBROMYALGIA
  3. ACETAMINOPHEN AND OXYCODONE HCL [Concomitant]
     Dosage: UNK

REACTIONS (2)
  - CATARACT [None]
  - DRUG EFFECT DECREASED [None]
